FAERS Safety Report 7810630-2 (Version None)
Quarter: 2011Q4

REPORT INFORMATION
  Report Type: 
  Country: None (occurrence: None)
  Receive Date: 20111013
  Receipt Date: 20111005
  Transmission Date: 20120403
  Serious: No
  Sender: FDA-Public Use
  Company Number: US-BIOGENIDEC-2011BI038213

PATIENT
  Age: 28 Year
  Sex: Female

DRUGS (2)
  1. TYSABRI [Suspect]
     Indication: MULTIPLE SCLEROSIS
     Route: 042
     Dates: start: 20110912
  2. TYSABRI [Suspect]
     Route: 042
     Dates: start: 20070418, end: 20091124

REACTIONS (3)
  - APHASIA [None]
  - TREMOR [None]
  - MULTIPLE SCLEROSIS [None]
